FAERS Safety Report 13119065 (Version 1)
Quarter: 2017Q1

REPORT INFORMATION
  Report Type: Spontaneous
  Country: US (occurrence: US)
  Receive Date: 20170116
  Receipt Date: 20170116
  Transmission Date: 20170428
  Serious: No
  Sender: FDA-Public Use
  Company Number: US-MANNKIND CORPORATION-2016MK000325

PATIENT
  Sex: Female
  Weight: 56.75 kg

DRUGS (5)
  1. HUMALOG [Concomitant]
     Active Substance: INSULIN LISPRO
     Indication: TYPE 1 DIABETES MELLITUS
     Dosage: BOLUS OF 1 OR 2 UNITS
     Dates: end: 20160930
  2. AFREZZA [Suspect]
     Active Substance: INSULIN HUMAN
     Indication: TYPE 1 DIABETES MELLITUS
     Dosage: 4 UNITS
     Dates: start: 20161001
  3. TRICEBA [Concomitant]
     Indication: TYPE 1 DIABETES MELLITUS
     Dosage: 12 UNITS
     Route: 065
     Dates: start: 20160930
  4. LANTUS [Concomitant]
     Active Substance: INSULIN GLARGINE
     Indication: TYPE 1 DIABETES MELLITUS
     Dosage: 12 UNITS
     Route: 065
     Dates: end: 20160929
  5. HUMALOG [Concomitant]
     Active Substance: INSULIN LISPRO
     Dates: start: 20161002, end: 20161003

REACTIONS (2)
  - Drug ineffective [Unknown]
  - Blood glucose increased [Unknown]
